FAERS Safety Report 8000124-6 (Version None)
Quarter: 2011Q4

REPORT INFORMATION
  Report Type: 
  Country: None (occurrence: None)
  Receive Date: 20111220
  Receipt Date: 20111220
  Transmission Date: 20120403
  Serious: Yes (Other)
  Sender: FDA-Public Use
  Company Number: None

PATIENT
  Age: 69 Year
  Sex: Female
  Weight: 72.5755 kg

DRUGS (1)
  1. METHIMAZOLE [Suspect]

REACTIONS (9)
  - PRURITUS [None]
  - OROPHARYNGEAL PAIN [None]
  - RASH [None]
  - MYALGIA [None]
  - ABDOMINAL DISCOMFORT [None]
  - SWELLING FACE [None]
  - ARTHRALGIA [None]
  - HEADACHE [None]
  - GASTROOESOPHAGEAL REFLUX DISEASE [None]
